FAERS Safety Report 6604545-5 (Version None)
Quarter: 2010Q1

REPORT INFORMATION
  Report Type: 
  Country: None (occurrence: None)
  Receive Date: 20100226
  Receipt Date: 20091119
  Transmission Date: 20100710
  Serious: No
  Sender: FDA-Public Use
  Company Number: A0818146A

PATIENT
  Age: 34 Year
  Sex: Female

DRUGS (5)
  1. LAMICTAL CD [Suspect]
     Indication: BIPOLAR DISORDER
     Dosage: 25MG TWICE PER DAY
     Route: 048
     Dates: start: 20090612, end: 20090901
  2. LITHIUM [Concomitant]
  3. KLONOPIN [Concomitant]
  4. SEROQUEL [Concomitant]
  5. VITAMINS [Concomitant]

REACTIONS (3)
  - HEADACHE [None]
  - RASH [None]
  - VISION BLURRED [None]
